FAERS Safety Report 18142465 (Version 1)
Quarter: 2020Q3

REPORT INFORMATION
  Report Type: Spontaneous
  Country: GR (occurrence: GR)
  Receive Date: 20200812
  Receipt Date: 20200812
  Transmission Date: 20201103
  Serious: Yes (Hospitalization, Other)
  Sender: FDA-Public Use
  Company Number: GR-AMGEN-GRCSP2020126934

PATIENT

DRUGS (1)
  1. ROMIPLOSTIM [Suspect]
     Active Substance: ROMIPLOSTIM
     Indication: IMMUNE THROMBOCYTOPENIA
     Dosage: UNK
     Route: 065

REACTIONS (6)
  - Endometrial cancer [Unknown]
  - Cervix carcinoma [Unknown]
  - Ischaemic stroke [Unknown]
  - Treatment noncompliance [Unknown]
  - Platelet count decreased [Unknown]
  - Therapy non-responder [Unknown]
